FAERS Safety Report 5090082-9 (Version None)
Quarter: 2006Q3

REPORT INFORMATION
  Report Type: 
  Country: None (occurrence: None)
  Receive Date: 20060828
  Receipt Date: 20060606
  Transmission Date: 20061208
  Serious: Yes (Hospitalization)
  Sender: FDA-Public Use
  Company Number: JP-ROCHE-450737

PATIENT
  Age: 60 Year
  Sex: Male

DRUGS (6)
  1. PANALDINE [Suspect]
     Indication: THROMBOSIS PROPHYLAXIS
     Dosage: OTHER INDICATION: STENT PLACEMENT.
     Route: 048
     Dates: start: 20060415, end: 20060419
  2. ARTIST [Concomitant]
     Route: 048
  3. PRERAN [Concomitant]
     Route: 048
  4. SIGMART [Concomitant]
     Route: 048
  5. BUFFERIN [Concomitant]
     Route: 048
  6. MEXITIL [Concomitant]
     Route: 048

REACTIONS (2)
  - ANGIONEUROTIC OEDEMA [None]
  - LARYNGEAL OEDEMA [None]
